FAERS Safety Report 18229094 (Version 1)
Quarter: 2020Q3

REPORT INFORMATION
  Report Type: Spontaneous
  Country: FR (occurrence: FR)
  Receive Date: 20200903
  Receipt Date: 20200903
  Transmission Date: 20201103
  Serious: Yes (Hospitalization)
  Sender: FDA-Public Use
  Company Number: NVSC2020FR238569

PATIENT
  Age: 28 Year
  Sex: Male

DRUGS (4)
  1. RITALINE [Suspect]
     Active Substance: METHYLPHENIDATE HYDROCHLORIDE
     Indication: DRUG USE DISORDER
     Dosage: 80 MG, PRN (AS NECESSARY)
     Route: 042
     Dates: start: 2018
  2. KETAMINE [Suspect]
     Active Substance: KETAMINE
     Indication: DRUG USE DISORDER
     Dosage: 1 DF, PRN (AS NECESSARY)
     Route: 055
     Dates: start: 2018
  3. STILNOX [Suspect]
     Active Substance: ZOLPIDEM TARTRATE
     Indication: DRUG USE DISORDER
     Dosage: 1 DF, PRN (AS NECESSARY)
     Route: 042
     Dates: start: 2003
  4. BUPRENORPHINE. [Suspect]
     Active Substance: BUPRENORPHINE
     Indication: DRUG USE DISORDER
     Dosage: 16 MG, PRN (AS NECESSARY)
     Route: 042
     Dates: start: 2013

REACTIONS (3)
  - Dermo-hypodermitis [Recovering/Resolving]
  - Drug use disorder [Not Recovered/Not Resolved]
  - Condition aggravated [Not Recovered/Not Resolved]

NARRATIVE: CASE EVENT DATE: 201806
